FAERS Safety Report 7555559-2 (Version None)
Quarter: 2011Q2

REPORT INFORMATION
  Report Type: 
  Country: None (occurrence: None)
  Receive Date: 20110617
  Receipt Date: 20050602
  Transmission Date: 20111010
  Serious: Yes (Death, Hospitalization)
  Sender: FDA-Public Use
  Company Number: PHHO2005US08892

PATIENT
  Sex: Female
  Weight: 49.55 kg

DRUGS (1)
  1. GLEEVEC [Suspect]
     Indication: OVARIAN EPITHELIAL CANCER
     Dosage: 600 MG, QD
     Route: 048
     Dates: start: 20040319

REACTIONS (11)
  - TACHYCARDIA [None]
  - DYSPNOEA [None]
  - LARGE INTESTINAL OBSTRUCTION [None]
  - ABDOMINAL DISCOMFORT [None]
  - PULMONARY OEDEMA [None]
  - HYPOXIA [None]
  - NEOPLASM MALIGNANT [None]
  - TACHYPNOEA [None]
  - HYPOTENSION [None]
  - SEPSIS [None]
  - LYMPHADENOPATHY [None]
